FAERS Safety Report 4418002-8 (Version None)
Quarter: 2004Q3

REPORT INFORMATION
  Report Type: 
  Country: None (occurrence: None)
  Receive Date: 20040804
  Receipt Date: 20040729
  Transmission Date: 20050211
  Serious: Yes (Death, Life-Threatening, Hospitalization)
  Sender: FDA-Public Use
  Company Number: 2004-FF-00335FF

PATIENT
  Age: 35 Year

DRUGS (3)
  1. VIRAMUNE [Suspect]
     Indication: HIV INFECTION
     Dosage: 400 MG (200 MG), PO
     Route: 048
     Dates: start: 20040405, end: 20040501
  2. VIDEX [Concomitant]
  3. EPIVIR [Concomitant]

REACTIONS (5)
  - CARDIAC ARREST [None]
  - CONFUSIONAL STATE [None]
  - RESPIRATORY FAILURE [None]
  - TONSILLITIS [None]
  - TOXIC EPIDERMAL NECROLYSIS [None]
